FAERS Safety Report 8479211-4 (Version None)
Quarter: 2012Q2

REPORT INFORMATION
  Report Type: 
  Country: None (occurrence: None)
  Receive Date: 20120629
  Receipt Date: 20120619
  Transmission Date: 20120825
  Serious: Yes (Other)
  Sender: FDA-Public Use
  Company Number: NL-CELGENEUS-114-C5013-12062702

PATIENT
  Sex: Male
  Weight: 117.4 kg

DRUGS (19)
  1. CODEINE SULFATE [Concomitant]
     Indication: COUGH
     Dosage: 60 MILLIGRAM
     Route: 048
     Dates: start: 20110610
  2. DOCETAXEL [Suspect]
     Indication: PROSTATE CANCER
     Route: 065
     Dates: start: 20110328, end: 20110815
  3. PREDNISONE TAB [Suspect]
     Indication: PROSTATE CANCER
     Route: 048
     Dates: start: 20110328, end: 20110925
  4. CAPTOPRIL [Concomitant]
     Indication: HYPERTENSION
     Dosage: 100 MILLIGRAM
     Route: 048
     Dates: start: 19980701
  5. CLOPIDOGREL [Concomitant]
     Indication: TRANSIENT ISCHAEMIC ATTACK
  6. LENALIDOMIDE [Suspect]
     Indication: PROSTATE CANCER
     Dosage: 25 MILLIGRAM
     Route: 048
     Dates: start: 20110328, end: 20111124
  7. METOPROLOL TARTRATE [Concomitant]
     Indication: HYPERTENSION
     Dosage: 200 MILLIGRAM
     Route: 048
     Dates: start: 19980601
  8. CLOPIDOGREL [Concomitant]
     Indication: HYPERTENSION
     Dosage: 75 MILLIGRAM
     Route: 048
     Dates: start: 20100601
  9. ATROVENT [Concomitant]
     Indication: BRONCHOSPASM
     Dosage: 40 MICROGRAM
     Route: 055
     Dates: start: 20110629
  10. BETAHISTINE [Concomitant]
     Indication: VERTIGO
     Dosage: 48 MILLIGRAM
     Route: 048
     Dates: start: 20101224
  11. NASONEX [Concomitant]
     Indication: BRONCHOSPASM
     Dosage: 50 MICROGRAM
     Route: 055
     Dates: start: 20110629
  12. PANTOPRAZOLE [Concomitant]
     Indication: GASTRITIS PROPHYLAXIS
     Dosage: 20 MILLIGRAM
     Route: 048
     Dates: start: 20100601
  13. ACETAMINOPHEN [Concomitant]
     Indication: PAIN
     Dosage: 3000 MILLIGRAM
     Route: 048
     Dates: start: 20110411
  14. ACETYLCYSTEINE [Concomitant]
     Dosage: 600 MILLIGRAM
     Route: 048
     Dates: start: 20120306
  15. VITAMIN D [Concomitant]
     Dosage: 1666.6667
     Route: 065
     Dates: start: 20120306
  16. ZOLADEX [Concomitant]
     Indication: PROSTATE CANCER
     Dosage: .12 MILLIGRAM
     Route: 058
     Dates: start: 20040901
  17. NIFEDIPINE [Concomitant]
     Indication: HYPERTENSION
     Dosage: 60 MILLIGRAM
     Route: 048
     Dates: start: 20030901
  18. SIMVASTATIN [Concomitant]
     Indication: HYPERCHOLESTEROLAEMIA
     Dosage: 40 MILLIGRAM
     Route: 048
     Dates: start: 20100501
  19. SUCRALFATE [Concomitant]
     Indication: GASTRITIS PROPHYLAXIS
     Dosage: 900 MILLIGRAM
     Route: 048
     Dates: start: 20120306

REACTIONS (1)
  - TONGUE NEOPLASM MALIGNANT STAGE UNSPECIFIED [None]
